FAERS Safety Report 5486970-1 (Version None)
Quarter: 2007Q3

REPORT INFORMATION
  Report Type: 
  Country: None (occurrence: None)
  Receive Date: 20070925
  Receipt Date: 20070911
  Transmission Date: 20080115
  Serious: No
  Sender: FDA-Public Use
  Company Number: 2007US001246

PATIENT
  Age: 41 Year
  Sex: Female

DRUGS (3)
  1. VESICARE [Suspect]
     Indication: HYPERTONIC BLADDER
     Dosage: 5MG UID/QD ORAL
     Route: 048
     Dates: start: 20070516
  2. YASMIN [Concomitant]
  3. NORTRIPTYLINE HCL [Concomitant]

REACTIONS (4)
  - ABDOMINAL DISTENSION [None]
  - CONSTIPATION [None]
  - CYSTITIS [None]
  - FLATULENCE [None]
